FAERS Safety Report 8042276-8 (Version None)
Quarter: 2012Q1

REPORT INFORMATION
  Report Type: 
  Country: None (occurrence: None)
  Receive Date: 20120112
  Receipt Date: 20120110
  Transmission Date: 20120608
  Serious: Yes (Other)
  Sender: FDA-Public Use
  Company Number: BR-ROCHE-772533

PATIENT
  Sex: Female
  Weight: 65 kg

DRUGS (5)
  1. ACTEMRA [Suspect]
     Route: 042
     Dates: start: 20101101, end: 20101101
  2. ACTEMRA [Suspect]
     Dosage: STOP DATE: 2011.
     Route: 042
  3. ACTEMRA [Suspect]
     Route: 042
     Dates: start: 20101201, end: 20101201
  4. ACTEMRA [Suspect]
     Route: 042
     Dates: start: 20110101, end: 20110101
  5. ACTEMRA [Suspect]
     Indication: PRODUCT USED FOR UNKNOWN INDICATION
     Route: 042
     Dates: start: 20101001, end: 20101001

REACTIONS (2)
  - UMBILICAL CORD ABNORMALITY [None]
  - PREGNANCY [None]
